FAERS Safety Report 10744463 (Version 1)
Quarter: 2015Q1

REPORT INFORMATION
  Report Type: Spontaneous
  Country: US (occurrence: None)
  Receive Date: 20150126
  Receipt Date: 20150126
  Transmission Date: 20150721
  Serious: Yes (Hospitalization)
  Sender: FDA-Public Use
  Company Number: None

PATIENT
  Age: 64 Year
  Sex: Male
  Weight: 74.1 kg

DRUGS (2)
  1. IOPAMIDOL [Suspect]
     Active Substance: IOPAMIDOL
     Indication: MASS
     Dates: start: 20140806, end: 20140806
  2. IOPAMIDOL [Suspect]
     Active Substance: IOPAMIDOL
     Indication: DYSPHAGIA
     Dates: start: 20140806, end: 20140806

REACTIONS (2)
  - Blood urea increased [None]
  - Blood creatinine increased [None]

NARRATIVE: CASE EVENT DATE: 20140806
